FAERS Safety Report 7553357-7 (Version None)
Quarter: 2011Q2

REPORT INFORMATION
  Report Type: 
  Country: None (occurrence: None)
  Receive Date: 20110617
  Receipt Date: 20110308
  Transmission Date: 20111010
  Serious: No
  Sender: FDA-Public Use
  Company Number: A0881305A

PATIENT
  Age: 66 Year
  Sex: Male

DRUGS (2)
  1. ROMIPLOSTIM [Concomitant]
  2. PROMACTA [Suspect]
     Route: 048
     Dates: start: 20100406, end: 20100920

REACTIONS (1)
  - DRUG INEFFECTIVE [None]
